FAERS Safety Report 6763082-8 (Version None)
Quarter: 2010Q2

REPORT INFORMATION
  Report Type: 
  Country: None (occurrence: None)
  Receive Date: 20100609
  Receipt Date: 20100528
  Transmission Date: 20101027
  Serious: Yes (Hospitalization)
  Sender: FDA-Public Use
  Company Number: FR-WYE-H15493610

PATIENT
  Age: 60 Year
  Sex: Male

DRUGS (8)
  1. CORDARONE [Suspect]
     Indication: ATRIAL FLUTTER
     Route: 048
     Dates: start: 20090205, end: 20090410
  2. PARACETAMOL [Concomitant]
     Dosage: UNKNOWN
     Route: 065
     Dates: end: 20090421
  3. VOGALENE [Suspect]
     Indication: NAUSEA
     Route: 048
     Dates: start: 20090402, end: 20090421
  4. FLUOROURACIL [Suspect]
     Indication: ORAL CAVITY CANCER METASTATIC
     Dosage: UNSPECIFIED DOSE; ONCE
     Route: 042
     Dates: start: 20090312, end: 20090312
  5. LANSOPRAZOLE [Suspect]
     Route: 048
     Dates: start: 20090402, end: 20090421
  6. TRIFLUCAN [Suspect]
     Indication: RADIATION OESOPHAGITIS
     Route: 048
     Dates: start: 20090402, end: 20090421
  7. ACTISKENAN [Concomitant]
     Dosage: UNKNOWN DOSE STOPPED ON 21-APR-2009 AND RESTARTED ON07-MAY-2009
     Route: 065
  8. CISPLATIN [Suspect]
     Indication: ORAL CAVITY CANCER METASTATIC
     Dosage: UNSPECIFIED DOSE; ONCE
     Route: 042
     Dates: start: 20090312, end: 20090312

REACTIONS (1)
  - DRUG ERUPTION [None]
